FAERS Safety Report 8624826-3 (Version None)
Quarter: 2012Q3

REPORT INFORMATION
  Report Type: 
  Country: None (occurrence: None)
  Receive Date: 20120827
  Receipt Date: 20120820
  Transmission Date: 20120928
  Serious: Yes (Hospitalization)
  Sender: FDA-Public Use
  Company Number: US-ABBOTT-12P-163-0889239-00

PATIENT
  Sex: Male
  Weight: 135.04 kg

DRUGS (9)
  1. HUMIRA [Suspect]
     Indication: PSORIASIS
     Route: 058
     Dates: start: 20111101, end: 20120101
  2. CLONAZEPAM [Concomitant]
     Indication: ANXIETY
  3. NEXIUM [Concomitant]
     Indication: PRODUCT USED FOR UNKNOWN INDICATION
  4. HUMIRA [Suspect]
     Dates: start: 20120801
  5. INVEGA [Concomitant]
     Indication: SCHIZOPHRENIA
  6. COGENTIN [Concomitant]
     Indication: ILL-DEFINED DISORDER
  7. LEXAPRO [Concomitant]
     Indication: ANTIDEPRESSANT THERAPY
  8. BUSPAR [Concomitant]
     Indication: ANXIETY
  9. SEROQUEL [Concomitant]
     Indication: PRODUCT USED FOR UNKNOWN INDICATION

REACTIONS (9)
  - PLEURISY [None]
  - COUGH [None]
  - FATIGUE [None]
  - PSORIASIS [None]
  - LUNG NEOPLASM [None]
  - HEADACHE [None]
  - PYREXIA [None]
  - DYSPNOEA [None]
  - CHEST PAIN [None]
